FAERS Safety Report 17334819 (Version 2)
Quarter: 2020Q1

REPORT INFORMATION
  Report Type: Spontaneous
  Country: US (occurrence: US)
  Receive Date: 20200128
  Receipt Date: 20200226
  Transmission Date: 20200409
  Serious: No
  Sender: FDA-Public Use
  Company Number: US-BAUSCH-BL-2020-001259

PATIENT
  Sex: Male

DRUGS (2)
  1. LUMIFY [Suspect]
     Active Substance: BRIMONIDINE TARTRATE
     Indication: PRODUCT USED FOR UNKNOWN INDICATION
     Dosage: STARTED FOR ABOUT A YEAR NOW
     Route: 065
  2. LUMIFY [Suspect]
     Active Substance: BRIMONIDINE TARTRATE
     Dosage: RECENTLY PURCHASED BOTTLE FROM AMAZON
     Route: 065

REACTIONS (4)
  - Eye irritation [Unknown]
  - Product container issue [Unknown]
  - Suspected counterfeit product [Unknown]
  - Product label issue [Unknown]
